FAERS Safety Report 14391352 (Version 2)
Quarter: 2018Q1

REPORT INFORMATION
  Report Type: Report from Study
  Country: IT (occurrence: IT)
  Receive Date: 20180116
  Receipt Date: 20180212
  Transmission Date: 20180509
  Serious: Yes (Hospitalization)
  Sender: FDA-Public Use
  Company Number: IT-CONCORDIA PHARMACEUTICALS INC.-E2B_00009448

PATIENT
  Age: 86 Year
  Sex: Female

DRUGS (1)
  1. LANOXIN [Suspect]
     Active Substance: DIGOXIN
     Route: 048

REACTIONS (2)
  - Vomiting [Recovered/Resolved]
  - Toxicity to various agents [Recovered/Resolved]

NARRATIVE: CASE EVENT DATE: 20160606
